FAERS Safety Report 10215724 (Version 1)
Quarter: 2014Q2

REPORT INFORMATION
  Report Type: Spontaneous
  Country: US (occurrence: None)
  Receive Date: 20140602
  Receipt Date: 20140602
  Transmission Date: 20141212
  Serious: Yes (Death)
  Sender: FDA-Public Use
  Company Number: US-MDCO-14-00125

PATIENT
  Age: 49 Year
  Sex: Female

DRUGS (1)
  1. ANGIOMAX (BIVALIRUDIN MARKETED) (BIVALIRUDIN) (BIVALIRUDIN) [Suspect]
     Indication: PRODUCT USED FOR UNKNOWN INDICATION
     Dosage: 0.15 MG/KG/HR, INTRAVENOUS DRIP
     Route: 041
     Dates: start: 20140425, end: 20140428

REACTIONS (2)
  - Incorrect drug administration duration [None]
  - Off label use [None]
